FAERS Safety Report 14419758 (Version 1)
Quarter: 2018Q1

REPORT INFORMATION
  Report Type: Spontaneous
  Country: US (occurrence: US)
  Receive Date: 20180122
  Receipt Date: 20180122
  Transmission Date: 20180509
  Serious: No
  Sender: FDA-Public Use
  Company Number: US-MYLANLABS-2018M1004054

PATIENT
  Sex: Female
  Weight: 49 kg

DRUGS (2)
  1. ESTRADIOL TRANSDERMAL SYSTEM [Suspect]
     Active Substance: ESTRADIOL
     Dosage: 1 UNK, UNK
     Route: 062
  2. ESTRADIOL TRANSDERMAL SYSTEM [Suspect]
     Active Substance: ESTRADIOL
     Indication: HORMONE REPLACEMENT THERAPY
     Dosage: UNK
     Route: 062

REACTIONS (10)
  - Application site erythema [Recovered/Resolved]
  - Urticaria [Recovered/Resolved]
  - Application site reaction [Recovering/Resolving]
  - Breast tenderness [Not Recovered/Not Resolved]
  - Dry skin [Recovered/Resolved]
  - Application site pruritus [Recovering/Resolving]
  - Skin burning sensation [Recovered/Resolved]
  - Application site erythema [Recovering/Resolving]
  - Skin erosion [Recovered/Resolved]
  - Drug ineffective [Unknown]
